FAERS Safety Report 9213207 (Version 1)
Quarter: 2013Q1

REPORT INFORMATION
  Report Type: Spontaneous
  Country: US (occurrence: None)
  Receive Date: 20120821
  Receipt Date: 20120821
  Transmission Date: 20140127
  Serious: Yes (Other)
  Sender: FDA-Public Use
  Company Number: RB-38270-2012

PATIENT
  Age: 84 Year
  Sex: Female

DRUGS (1)
  1. MUCINEX [Suspect]
     Indication: PRODUCT USED FOR UNKNOWN INDICATION
     Dosage: (2 TABLETS LESS THAN EVERY 12 HOURS APART ORAL)
     Route: 048

REACTIONS (4)
  - Diarrhoea [None]
  - Nervousness [None]
  - Dizziness [None]
  - Inappropriate schedule of drug administration [None]
